FAERS Safety Report 9296857 (Version 5)
Quarter: 2013Q3

REPORT INFORMATION
  Report Type: Spontaneous
  Country: US (occurrence: US)
  Receive Date: 20130517
  Receipt Date: 20130930
  Transmission Date: 20140515
  Serious: No
  Sender: FDA-Public Use
  Company Number: US-PFIZER INC-2013151269

PATIENT
  Age: 85 Year
  Sex: Female
  Weight: 72.56 kg

DRUGS (6)
  1. CELEBREX [Suspect]
     Indication: PAIN
     Dosage: 200 MG, 1X/DAY
     Dates: start: 201212, end: 201212
  2. CELEBREX [Suspect]
     Indication: MUSCLE RELAXANT THERAPY
  3. ATENOLOL [Suspect]
     Dosage: 100 MG, 2X/DAY
  4. LIPITOR [Concomitant]
     Indication: BLOOD CHOLESTEROL INCREASED
     Dosage: UNK
  5. PANTOPRAZOLE [Concomitant]
     Indication: DYSPEPSIA
     Dosage: 40 MG, 1X/DAY
  6. BABY ASPIRIN [Concomitant]
     Indication: CARDIAC DISORDER
     Dosage: 81 MG, 1X/DAY

REACTIONS (2)
  - Tachycardia [Recovered/Resolved]
  - Pain [Not Recovered/Not Resolved]
